FAERS Safety Report 4435432-9 (Version None)
Quarter: 2004Q3

REPORT INFORMATION
  Report Type: 
  Country: None (occurrence: None)
  Receive Date: 20040826
  Receipt Date: 20040813
  Transmission Date: 20050211
  Serious: Yes (Hospitalization, Other)
  Sender: FDA-Public Use
  Company Number: 2004056046

PATIENT
  Age: 81 Year
  Sex: Female

DRUGS (9)
  1. LIPITOR [Suspect]
     Indication: ILL-DEFINED DISORDER
     Dosage: (10 MG)
     Dates: start: 20000601, end: 20040801
  2. LANSOPRAZOLE [Concomitant]
  3. FOSINOPRIL SODIUM [Concomitant]
  4. AMLODIPINE BESYLATE [Concomitant]
  5. TRAMADOL HCL [Concomitant]
  6. ALLOPURINOL [Concomitant]
  7. FLUOXETINE HYDROCHLORIDE [Concomitant]
  8. INDAPAMIDE [Concomitant]
  9. ALPRAZOLAM [Concomitant]

REACTIONS (15)
  - BLOOD CALCIUM ABNORMAL [None]
  - BLOOD POTASSIUM INCREASED [None]
  - COLITIS [None]
  - CONDITION AGGRAVATED [None]
  - DEHYDRATION [None]
  - ERUCTATION [None]
  - FALL [None]
  - FLATULENCE [None]
  - FLUID RETENTION [None]
  - FRACTURE [None]
  - GASTRIC DISORDER [None]
  - HIP FRACTURE [None]
  - NEUROPATHY PERIPHERAL [None]
  - OESOPHAGITIS [None]
  - OSTEOPOROSIS [None]
